FAERS Safety Report 4903141-5 (Version None)
Quarter: 2006Q1

REPORT INFORMATION
  Report Type: 
  Country: None (occurrence: None)
  Receive Date: 20060207
  Receipt Date: 20060126
  Transmission Date: 20060701
  Serious: Yes (Hospitalization)
  Sender: FDA-Public Use
  Company Number: AT-BRISTOL-MYERS SQUIBB COMPANY-13261755

PATIENT
  Age: 20 Year
  Sex: Male

DRUGS (4)
  1. ABILIFY [Suspect]
     Indication: SCHIZOPHRENIA
     Route: 048
     Dates: start: 20051027, end: 20051103
  2. SOLIAN [Concomitant]
     Dates: end: 20051020
  3. HALDOL [Concomitant]
     Route: 042
     Dates: start: 20051021, end: 20051026
  4. DIAZEPAM [Concomitant]
     Route: 042
     Dates: start: 20051021, end: 20051026

REACTIONS (1)
  - TONGUE SPASM [None]
